FAERS Safety Report 14835765 (Version 12)
Quarter: 2022Q1

REPORT INFORMATION
  Report Type: Spontaneous
  Country: GB (occurrence: GB)
  Receive Date: 20180502
  Receipt Date: 20220325
  Transmission Date: 20220423
  Serious: Yes (Other)
  Sender: FDA-Public Use
  Company Number: GB-EMA-DD-20180219-TANEJAEVHP-125750

PATIENT
  Age: 61 Year
  Sex: Female
  Weight: 60.1 kg

DRUGS (19)
  1. VALPROATE SODIUM [Suspect]
     Active Substance: VALPROATE SODIUM
     Indication: Product used for unknown indication
     Dosage: 1200 MILLIGRAM DAILY; 600 MG, BID , THERAPY START DATE AND END DATE : ASKU
     Route: 048
  2. VALPROATE SODIUM [Suspect]
     Active Substance: VALPROATE SODIUM
     Dosage: 600 MILLIGRAM DAILY; 600 MG, QD , THERAPY START DATE AND END DATE : ASKU
     Route: 048
  3. VALPROATE SODIUM [Suspect]
     Active Substance: VALPROATE SODIUM
     Dosage: 1200 MILLIGRAM DAILY; 600 MG, BID
     Route: 048
  4. VALPROATE SODIUM [Suspect]
     Active Substance: VALPROATE SODIUM
     Dosage: 600 MILLIGRAM DAILY; 600 MG, QD
     Route: 048
  5. AMISULPRIDE [Suspect]
     Active Substance: AMISULPRIDE
     Indication: Product used for unknown indication
     Dosage: 400 MILLIGRAM DAILY; 200 MG, BID , THERAPY START DATE AND END DATE : ASKU
     Route: 048
  6. AMISULPRIDE [Suspect]
     Active Substance: AMISULPRIDE
     Indication: Product used for unknown indication
     Dosage: 400 MILLIGRAM DAILY; THERAPY START AND END DATE: ASKU
     Route: 048
  7. AMISULPRIDE [Suspect]
     Active Substance: AMISULPRIDE
     Dosage: 200 MG, BID , UNIT DOSE : 800 MG
     Route: 048
  8. LORAZEPAM [Suspect]
     Active Substance: LORAZEPAM
     Indication: Product used for unknown indication
     Dosage: 1 MG, PRN; AS NECESSARY
     Route: 048
  9. LORAZEPAM [Suspect]
     Active Substance: LORAZEPAM
     Dosage: 100 MILLIGRAM DAILY; THERAPY START AND END DATE: ASKU
     Route: 048
  10. LORAZEPAM [Suspect]
     Active Substance: LORAZEPAM
     Dosage: 1 MG, PRN , THERAPY START DATE AND END DATE : ASKU
     Route: 048
  11. CITALOPRAM [Suspect]
     Active Substance: CITALOPRAM HYDROBROMIDE
     Indication: Product used for unknown indication
     Dosage: 30 MILLIGRAM DAILY; 30 MG, QD
     Route: 048
  12. CITALOPRAM [Suspect]
     Active Substance: CITALOPRAM HYDROBROMIDE
     Indication: Product used for unknown indication
     Dosage: 30 MILLIGRAM DAILY; THERAPY START DATE AND END DATE : ASKU
     Route: 048
  13. PIRENZEPINE [Suspect]
     Active Substance: PIRENZEPINE
     Indication: Product used for unknown indication
     Dosage: 100 MILLIGRAM DAILY; 50 MG, BID
     Route: 048
  14. PIRENZEPINE [Suspect]
     Active Substance: PIRENZEPINE
     Dosage: 600 MILLIGRAM DAILY; THERAPY START AND END DATE: ASKU
     Route: 048
  15. PIRENZEPINE [Suspect]
     Active Substance: PIRENZEPINE
     Dosage: 100 MILLIGRAM DAILY; 50 MG, BID , THERAPY START DATE AND END DATE : ASKU
     Route: 048
  16. PIRENZEPINE [Suspect]
     Active Substance: PIRENZEPINE
     Dosage: 100 MILLIGRAM DAILY; 50 MG, BID , UNIT DOSE : 200 MG
     Route: 048
  17. PIRENZEPINE [Suspect]
     Active Substance: PIRENZEPINE
     Dosage: 600 MILLIGRAM DAILY; 600 MG, QD
     Route: 065
  18. CLOZARIL [Suspect]
     Active Substance: CLOZAPINE
     Indication: Schizophrenia
     Dosage: 400 MILLIGRAM DAILY; 400 MG, QD, PM
     Route: 048
     Dates: start: 20030116
  19. CLOZARIL [Suspect]
     Active Substance: CLOZAPINE
     Dosage: 400 MILLIGRAM DAILY; 200 MG, BID, THERAPY START DATE: ASKU; THERAPY END DATE: ASKU
     Route: 048

REACTIONS (2)
  - Differential white blood cell count abnormal [Recovering/Resolving]
  - Neutrophil count abnormal [Recovering/Resolving]

NARRATIVE: CASE EVENT DATE: 20170118
